FAERS Safety Report 6382116-6 (Version None)
Quarter: 2009Q3

REPORT INFORMATION
  Report Type: 
  Country: None (occurrence: None)
  Receive Date: 20090930
  Receipt Date: 20090924
  Transmission Date: 20100115
  Serious: Yes (Other)
  Sender: FDA-Public Use
  Company Number: PHHY2009AT33063

PATIENT
  Sex: Male

DRUGS (1)
  1. VOLTAREN [Suspect]
     Indication: ARTHRALGIA
     Dosage: 50 MG, UNK

REACTIONS (3)
  - CONTUSION [None]
  - HAEMORRHAGIC DIATHESIS [None]
  - RED BLOOD CELL SEDIMENTATION RATE INCREASED [None]
